FAERS Safety Report 6286713-8 (Version None)
Quarter: 2009Q3

REPORT INFORMATION
  Report Type: 
  Country: None (occurrence: None)
  Receive Date: 20090716
  Receipt Date: 20080926
  Transmission Date: 20100115
  Serious: Yes (Hospitalization)
  Sender: FDA-Public Use
  Company Number: 2008BI008649

PATIENT
  Age: 60 Year
  Sex: Female

DRUGS (3)
  1. AVONEX [Suspect]
     Indication: MULTIPLE SCLEROSIS
     Dosage: IM
     Route: 030
     Dates: start: 20000801
  2. CON MEDS [Concomitant]
  3. PREV MEDS [Concomitant]

REACTIONS (10)
  - ATAXIA [None]
  - ATRIAL FIBRILLATION [None]
  - CONVULSION [None]
  - CYSTITIS [None]
  - LETHARGY [None]
  - MULTIPLE SCLEROSIS [None]
  - PYREXIA [None]
  - SPEECH DISORDER [None]
  - TREMOR [None]
  - URINARY TRACT INFECTION [None]
